FAERS Safety Report 4401048-3 (Version None)
Quarter: 2004Q3

REPORT INFORMATION
  Report Type: 
  Country: None (occurrence: None)
  Receive Date: 20040907
  Receipt Date: 20031008
  Transmission Date: 20050211
  Serious: No
  Sender: FDA-Public Use
  Company Number: US-BRISTOL-MYERS SQUIBB COMPANY-12405650

PATIENT
  Age: 94 Year
  Sex: Female
  Weight: 48 kg

DRUGS (3)
  1. COUMADIN [Suspect]
     Dosage: DOSE REGULATED BY LAB TEST RESULTS.
     Route: 048
  2. ALTACE [Concomitant]
  3. LANOXIN [Concomitant]

REACTIONS (2)
  - FATIGUE [None]
  - LABORATORY TEST ABNORMAL [None]
